FAERS Safety Report 11171276 (Version 2)
Quarter: 2015Q2

REPORT INFORMATION
  Report Type: Spontaneous
  Country: KR (occurrence: KR)
  Receive Date: 20150608
  Receipt Date: 20150624
  Transmission Date: 20150821
  Serious: Yes (Hospitalization)
  Sender: FDA-Public Use
  Company Number: KR-BAYER-2015-308519

PATIENT
  Age: 53 Year
  Sex: Female

DRUGS (1)
  1. LEVONORGESTREL IUS [UNKNOWN] [Suspect]
     Active Substance: LEVONORGESTREL
     Dosage: UNK
     Route: 015

REACTIONS (6)
  - Intestinal perforation [Unknown]
  - Peritonitis [Unknown]
  - Lymphadenopathy [Unknown]
  - Haematochezia [Unknown]
  - Abdominal adhesions [Unknown]
  - Device dislocation [Unknown]
